FAERS Safety Report 4700245-7 (Version None)
Quarter: 2005Q2

REPORT INFORMATION
  Report Type: 
  Country: None (occurrence: None)
  Receive Date: 20050624
  Receipt Date: 20050624
  Transmission Date: 20051028
  Serious: Yes (Other)
  Sender: FDA-Public Use
  Company Number: None

PATIENT
  Age: 25 Year
  Sex: Male

DRUGS (2)
  1. COPPERTONE SPORT SPRAY SPF 30 TOPICAL SPRAY [Suspect]
     Indication: PROPHYLAXIS AGAINST SOLAR RADIATION
     Dosage: 2X IN 4-5 H TOPICAL
     Route: 061
     Dates: start: 20050610, end: 20050610
  2. ANTIBIOTIC TOPICAL [Concomitant]

REACTIONS (8)
  - BLISTER [None]
  - BURNS SECOND DEGREE [None]
  - DEHYDRATION [None]
  - LOSS OF CONSCIOUSNESS [None]
  - OEDEMA PERIPHERAL [None]
  - SKIN EXFOLIATION [None]
  - SKIN ULCER [None]
  - SUNBURN [None]
